FAERS Safety Report 20035603 (Version 7)
Quarter: 2022Q4

REPORT INFORMATION
  Report Type: Spontaneous
  Country: US (occurrence: US)
  Receive Date: 20211104
  Receipt Date: 20221130
  Transmission Date: 20230112
  Serious: Yes (Other)
  Sender: FDA-Public Use
  Company Number: US-SEATTLE GENETICS-2021SGN05594

PATIENT
  Age: 62 Year
  Sex: Female

DRUGS (8)
  1. TUKYSA [Suspect]
     Active Substance: TUCATINIB
     Indication: HER2 positive breast cancer
     Dosage: 150 MG 2 TABS BID
     Route: 048
     Dates: start: 20210904, end: 202201
  2. PRILOSEC [Suspect]
     Active Substance: OMEPRAZOLE MAGNESIUM
     Indication: Dyspepsia
     Dosage: UNK
     Route: 065
  3. HERCEPTIN [Concomitant]
     Active Substance: TRASTUZUMAB
     Indication: HER2 positive breast cancer
     Dosage: 6 MG/KG, Q21D
     Route: 042
     Dates: start: 201201
  4. CYTARABINE [Concomitant]
     Active Substance: CYTARABINE
     Indication: HER2 positive breast cancer
     Dosage: UNK
     Route: 065
     Dates: start: 202012
  5. POTASSIUM CHLORIDE [Concomitant]
     Active Substance: POTASSIUM CHLORIDE
     Dosage: 40 MG; 2, 20 MG TABLETS
  6. DULCOLAX (BISACODYL) [Concomitant]
     Active Substance: BISACODYL
  7. COLACE [Concomitant]
     Active Substance: DOCUSATE SODIUM
  8. LINZESS [Concomitant]
     Active Substance: LINACLOTIDE

REACTIONS (10)
  - Hypokalaemia [Unknown]
  - Malignant neoplasm progression [Unknown]
  - Dyspepsia [Unknown]
  - Therapy responder [Unknown]
  - Exercise lack of [Unknown]
  - Balance disorder [Not Recovered/Not Resolved]
  - Product residue present [Recovered/Resolved]
  - Drug ineffective [Unknown]
  - Gait disturbance [Unknown]
  - Ligament injury [Unknown]

NARRATIVE: CASE EVENT DATE: 20211001
